FAERS Safety Report 5555324-1 (Version None)
Quarter: 2007Q4

REPORT INFORMATION
  Report Type: 
  Country: None (occurrence: None)
  Receive Date: 20071130
  Receipt Date: 20070925
  Transmission Date: 20080405
  Serious: No
  Sender: FDA-Public Use
  Company Number: US200704006452

PATIENT
  Age: 42 Year
  Sex: Female
  Weight: 111.6 kg

DRUGS (4)
  1. BYETTA [Suspect]
     Indication: TYPE 2 DIABETES MELLITUS
     Dosage: 5 UG, 2/D, SUBCUTANEOUS ; 10 UG, 2/D, SUBCUTANEOUS
     Route: 058
     Dates: start: 20061229, end: 20070101
  2. BYETTA [Suspect]
     Indication: TYPE 2 DIABETES MELLITUS
     Dosage: 5 UG, 2/D, SUBCUTANEOUS ; 10 UG, 2/D, SUBCUTANEOUS
     Route: 058
     Dates: start: 20070101, end: 20070428
  3. METFORMIN HCL [Concomitant]
  4. VITAMINS [Concomitant]

REACTIONS (11)
  - BLOOD GLUCOSE INCREASED [None]
  - BLOOD PRESSURE DECREASED [None]
  - BLOOD TRIGLYCERIDES DECREASED [None]
  - DECREASED APPETITE [None]
  - HIGH DENSITY LIPOPROTEIN DECREASED [None]
  - INJECTION SITE PAIN [None]
  - LOW DENSITY LIPOPROTEIN DECREASED [None]
  - NAUSEA [None]
  - POLYMENORRHOEA [None]
  - TOTAL CHOLESTEROL/HDL RATIO DECREASED [None]
  - WEIGHT DECREASED [None]
